FAERS Safety Report 21976451 (Version 2)
Quarter: 2023Q1

REPORT INFORMATION
  Report Type: Spontaneous
  Country: FR (occurrence: FR)
  Receive Date: 20230210
  Receipt Date: 20230313
  Transmission Date: 20230418
  Serious: Yes (Death, Other)
  Sender: FDA-Public Use
  Company Number: FR-ABBVIE-4301134

PATIENT
  Age: 65 Year
  Sex: Male

DRUGS (2)
  1. CARBIDOPA\LEVODOPA [Suspect]
     Active Substance: CARBIDOPA\LEVODOPA
     Indication: Parkinson^s disease
     Route: 050
     Dates: start: 20221109, end: 202302
  2. CARBIDOPA\LEVODOPA [Suspect]
     Active Substance: CARBIDOPA\LEVODOPA

REACTIONS (5)
  - Peritonitis [Fatal]
  - Pyrexia [Unknown]
  - Inflammation [Unknown]
  - Cerebrovascular accident [Unknown]
  - Pain [Unknown]

NARRATIVE: CASE EVENT DATE: 20230206
